FAERS Safety Report 21481824 (Version 1)
Quarter: 2022Q4

REPORT INFORMATION
  Report Type: Spontaneous
  Country: US (occurrence: US)
  Receive Date: 20221020
  Receipt Date: 20221020
  Transmission Date: 20230113
  Serious: No
  Sender: FDA-Public Use
  Company Number: US-AMGEN-USASP2022179083

PATIENT
  Age: 77 Year

DRUGS (4)
  1. RITUXIMAB [Suspect]
     Active Substance: RITUXIMAB
     Indication: Pulmonary renal syndrome
     Dosage: 375 MILLIGRAM/M^2
     Route: 040
  2. METHYLPREDNISOLONE [Concomitant]
     Active Substance: METHYLPREDNISOLONE
     Indication: Pulmonary renal syndrome
     Dosage: 1 GRAM
  3. METHYLPREDNISOLONE [Concomitant]
     Active Substance: METHYLPREDNISOLONE
     Indication: Anti-neutrophil cytoplasmic antibody positive vasculitis
  4. PREDNISONE [Concomitant]
     Active Substance: PREDNISONE
     Indication: Product used for unknown indication
     Dosage: 40 MILLIGRAM, BID
     Route: 065

REACTIONS (1)
  - Off label use [Unknown]
